FAERS Safety Report 9304978 (Version 1)
Quarter: 2013Q2

REPORT INFORMATION
  Report Type: Spontaneous
  Country: CA (occurrence: CA)
  Receive Date: 20130523
  Receipt Date: 20130523
  Transmission Date: 20140414
  Serious: Yes (Other)
  Sender: FDA-Public Use
  Company Number: CA-AMGEN-CANSP2013035492

PATIENT
  Age: 77 Year
  Sex: Female

DRUGS (1)
  1. PROLIA [Suspect]
     Indication: OSTEOPOROSIS POSTMENOPAUSAL

REACTIONS (10)
  - Depression [Unknown]
  - Hypersomnia [Unknown]
  - Rash erythematous [Unknown]
  - Burning sensation [Unknown]
  - Rash pruritic [Unknown]
  - Pain [Unknown]
  - Hypoaesthesia [Unknown]
  - Arthralgia [Unknown]
  - Asthenia [Unknown]
  - Pain in extremity [Unknown]
